FAERS Safety Report 5247803-1 (Version None)
Quarter: 2007Q1

REPORT INFORMATION
  Report Type: 
  Country: None (occurrence: None)
  Receive Date: 20070227
  Receipt Date: 20070222
  Transmission Date: 20070707
  Serious: Yes (Other)
  Sender: FDA-Public Use
  Company Number: 2007UW03470

PATIENT
  Age: 4 Year
  Sex: Male

DRUGS (3)
  1. PULMICORT RESPULES [Suspect]
     Indication: ASTHMA
     Route: 055
  2. PULMICORT RESPULES [Interacting]
     Route: 055
  3. ALBUTEROL [Interacting]

REACTIONS (5)
  - BLISTER [None]
  - COUGH [None]
  - DYSPNOEA [None]
  - MEDICATION ERROR [None]
  - URTICARIA [None]
